FAERS Safety Report 5296163-9 (Version None)
Quarter: 2007Q2

REPORT INFORMATION
  Report Type: 
  Country: None (occurrence: None)
  Receive Date: 20070406
  Receipt Date: 20070402
  Transmission Date: 20071010
  Serious: Yes (Death, Disabling, Other)
  Sender: FDA-Public Use
  Company Number: TCI2007A00698

PATIENT
  Age: 81 Year
  Sex: Male

DRUGS (7)
  1. LANSOPRAZOLE [Suspect]
     Indication: GASTRIC ULCER
     Dosage: 30 MG (30 MG, 1 IN 1 D) PER ORAL
     Route: 048
     Dates: start: 20070130, end: 20070205
  2. LASIX [Concomitant]
  3. LUPRAC (TORASEMIDE) [Concomitant]
  4. HALFDIGOXIN-KY (DIGOXIN) [Concomitant]
  5. SLOW-K [Concomitant]
  6. ALOSENN (ALOSENN) [Concomitant]
  7. ALLOPURINOL [Concomitant]

REACTIONS (10)
  - ACUTE HEPATIC FAILURE [None]
  - CARDIAC FAILURE CONGESTIVE [None]
  - CONDITION AGGRAVATED [None]
  - LUNG INFILTRATION [None]
  - OEDEMA [None]
  - PLEURAL EFFUSION [None]
  - PNEUMONIA [None]
  - PULMONARY CONGESTION [None]
  - RENAL IMPAIRMENT [None]
  - VENTRICULAR DYSFUNCTION [None]
